FAERS Safety Report 12311389 (Version 1)
Quarter: 2016Q2

REPORT INFORMATION
  Report Type: Report from Study
  Country: US (occurrence: US)
  Receive Date: 20160427
  Receipt Date: 20160427
  Transmission Date: 20160815
  Serious: Yes (Hospitalization, Congenital Anomaly)
  Sender: FDA-Public Use
  Company Number: US-PFIZER INC-2016226750

PATIENT
  Age: 3 Month
  Sex: Female

DRUGS (1)
  1. PROVERA [Suspect]
     Active Substance: MEDROXYPROGESTERONE ACETATE
     Indication: HAEMORRHAGE IN PREGNANCY
     Dosage: 25 MG, UNK
     Route: 064

REACTIONS (2)
  - Enlarged clitoris [Recovered/Resolved]
  - Exposure during pregnancy [Recovered/Resolved]
